FAERS Safety Report 4427433-1 (Version None)
Quarter: 2004Q3

REPORT INFORMATION
  Report Type: 
  Country: None (occurrence: None)
  Receive Date: 20040812
  Receipt Date: 20040728
  Transmission Date: 20050211
  Serious: Yes (Life-Threatening)
  Sender: FDA-Public Use
  Company Number: 04P-020-0268646-00

PATIENT
  Age: 17 Year
  Sex: Male
  Weight: 85 kg

DRUGS (4)
  1. BIAXIN XL [Suspect]
     Indication: PHARYNGOLARYNGEAL PAIN
     Dosage: 500 MG, 1 IN 1 D, ORAL
     Route: 048
     Dates: start: 20040719, end: 20040723
  2. NIMESULIDE [Concomitant]
  3. SILIMALON [Concomitant]
  4. DIGEPLUS [Concomitant]

REACTIONS (2)
  - CHROMATURIA [None]
  - HEPATITIS [None]
